FAERS Safety Report 23324118 (Version 1)
Quarter: 2023Q4

REPORT INFORMATION
  Report Type: Spontaneous
  Country: US (occurrence: US)
  Receive Date: 20231221
  Receipt Date: 20231221
  Transmission Date: 20240110
  Serious: No
  Sender: FDA-Public Use
  Company Number: US-SA-SAC20231218001042

PATIENT
  Age: 62 Year
  Sex: Female

DRUGS (13)
  1. DUPIXENT [Suspect]
     Active Substance: DUPILUMAB
     Indication: Dermatitis atopic
     Dosage: 1 DF, QOW
     Route: 058
     Dates: start: 20231117
  2. TRIAMCINOLONE ACETONIDE [Concomitant]
     Active Substance: TRIAMCINOLONE ACETONIDE
     Dosage: UNK
  3. PROTOPIC [Concomitant]
     Active Substance: TACROLIMUS
     Dosage: UNK
  4. KETOTIFEN [Concomitant]
     Active Substance: KETOTIFEN
     Dosage: UNK
  5. BETAMETHASONE DIPROPIONATE AUGMENTED [Concomitant]
     Active Substance: BETAMETHASONE DIPROPIONATE
     Dosage: UNK
  6. ECONAZOLE [Concomitant]
     Active Substance: ECONAZOLE
     Dosage: UNK
  7. FLUOCINOLONE [Concomitant]
     Active Substance: FLUOCINOLONE
     Dosage: UNK
  8. CLARITIN [Concomitant]
     Active Substance: LORATADINE
     Dosage: UNK
  9. DOXEPIN [Concomitant]
     Active Substance: DOXEPIN
     Dosage: UNK
  10. LORAZEPAM [Concomitant]
     Active Substance: LORAZEPAM
  11. MUPIROCIN [Concomitant]
     Active Substance: MUPIROCIN
  12. CURADERM [BENZOYL PEROXIDE] [Concomitant]
  13. DIQUAFOSOL [Concomitant]
     Active Substance: DIQUAFOSOL
     Dosage: UNK

REACTIONS (5)
  - Abdominal pain upper [Unknown]
  - Lacrimation increased [Unknown]
  - Skin disorder [Unknown]
  - Eye irritation [Unknown]
  - Eye pruritus [Unknown]

NARRATIVE: CASE EVENT DATE: 20230101
